FAERS Safety Report 8106393-6 (Version None)
Quarter: 2012Q1

REPORT INFORMATION
  Report Type: 
  Country: None (occurrence: None)
  Receive Date: 20120202
  Receipt Date: 20120127
  Transmission Date: 20120608
  Serious: Yes (Death, Hospitalization)
  Sender: FDA-Public Use
  Company Number: CA-CELGENEUS-028-C5013-12011266

PATIENT
  Sex: Male
  Weight: 57.2 kg

DRUGS (73)
  1. PRILOSEC [Concomitant]
  2. SYNTHROID [Concomitant]
     Indication: HYPOTHYROIDISM
     Dosage: .5 MILLIGRAM
     Route: 048
     Dates: start: 20110527, end: 20110623
  3. TRAVOPROST AND TIMOLOL [Concomitant]
     Indication: GLAUCOMA
     Route: 047
     Dates: start: 20070101, end: 20120110
  4. POTASSIUM CHLORIDE [Concomitant]
     Dosage: 20 MICROGRAM
     Route: 048
     Dates: start: 20120113, end: 20120113
  5. ACETAMINOPHEN [Concomitant]
     Dosage: 500MG, 1-2
     Route: 048
     Dates: end: 20120118
  6. SODIUM CHLORIDE [Concomitant]
     Indication: FLUID REPLACEMENT
     Dosage: 40 CC
     Route: 040
     Dates: start: 20120111, end: 20120112
  7. PROCHLORPERAZINE [Concomitant]
     Indication: NAUSEA
     Route: 065
  8. SERAX [Concomitant]
     Indication: INSOMNIA
     Dosage: 15 MILLIGRAM
     Route: 048
     Dates: start: 20120111, end: 20120118
  9. LEVOPHED [Concomitant]
     Indication: HYPOTENSION
     Dosage: 4 MILLIGRAM
     Route: 041
     Dates: start: 20120112, end: 20120114
  10. ALENDRONATE SODIUM [Concomitant]
  11. VENTOLIN [Concomitant]
     Dosage: 4
     Route: 055
     Dates: start: 20120112
  12. ATROVENT [Concomitant]
     Dosage: 4
     Route: 055
     Dates: start: 20120112
  13. XALATAN [Concomitant]
     Indication: GLAUCOMA
     Dosage: 1 DROPS
     Route: 058
     Dates: start: 20120112, end: 20120118
  14. SOLU-CORTEF [Concomitant]
     Indication: INFECTION
  15. TIMOLOL MALEATE [Concomitant]
     Indication: GLAUCOMA
     Dosage: 1 DROPS
     Route: 041
     Dates: start: 20120112, end: 20120118
  16. PANTOPRAZOLE SODIUM [Concomitant]
     Dosage: 40 MILLIGRAM
     Route: 048
     Dates: start: 20120111, end: 20120118
  17. POTASSIUM PHOSPHATES [Concomitant]
     Route: 041
     Dates: start: 20120114, end: 20120114
  18. SODIUM CHLORIDE [Concomitant]
     Dosage: 50 MILLILITER
     Route: 040
     Dates: start: 20120112, end: 20120113
  19. ENSURE [Concomitant]
     Route: 065
     Dates: start: 20110201
  20. INHALER [Concomitant]
     Route: 055
  21. SENOKOT [Concomitant]
     Indication: CONSTIPATION
     Route: 048
     Dates: end: 20120110
  22. VERSED [Concomitant]
     Dosage: 25 MILLIGRAM
     Route: 065
     Dates: start: 20120121
  23. PEPCID [Concomitant]
     Indication: DYSPEPSIA
     Dosage: 20 MILLIGRAM
     Route: 041
     Dates: start: 20120112, end: 20120114
  24. MUCOMYST [Concomitant]
     Indication: PREMEDICATION
     Dosage: 600 MILLIGRAM
     Route: 048
     Dates: start: 20120114, end: 20120115
  25. AMLODIPINE [Concomitant]
     Indication: HYPERTENSION
     Dosage: 5 MILLIGRAM
     Route: 048
     Dates: start: 20050101, end: 20120110
  26. PRAVASTATIN [Concomitant]
     Indication: HYPERTENSION
     Dosage: 40 MILLIGRAM
     Route: 048
     Dates: start: 20050101
  27. HEPARIN [Concomitant]
     Indication: DYSPEPSIA
     Dosage: 5000
     Route: 058
     Dates: start: 20120112, end: 20120113
  28. FLU VACCINE [Concomitant]
     Dosage: .5 MILLILITER
     Route: 065
     Dates: start: 20101104, end: 20101104
  29. PRAVASTATIN [Concomitant]
  30. COLACE [Concomitant]
     Indication: CONSTIPATION
     Dosage: 100-200MG
     Route: 048
     Dates: start: 20100526, end: 20120110
  31. LASIX [Concomitant]
     Indication: OEDEMA
     Dosage: 20 MILLIGRAM
     Route: 041
     Dates: start: 20120114, end: 20120114
  32. ALENDRONATE SODIUM [Concomitant]
     Indication: OSTEOPOROSIS
     Dosage: 70 MILLIGRAM
     Route: 048
  33. EURO-D [Concomitant]
     Indication: OSTEOPOROSIS
  34. CRESTOR [Concomitant]
     Dosage: 2.5 MILLIGRAM
     Route: 048
     Dates: start: 20120112, end: 20120118
  35. NORMAL SALINE W/ KCL [Concomitant]
     Dosage: 80 CC
     Route: 040
     Dates: start: 20120113, end: 20120115
  36. DEXAMETHASONE [Suspect]
     Indication: MULTIPLE MYELOMA
     Dosage: 20 MILLIGRAM
     Route: 065
     Dates: start: 20101104
  37. GRAVOL TAB [Concomitant]
     Indication: NAUSEA
     Dosage: 50 MILLIGRAM
     Route: 041
     Dates: start: 20120110, end: 20120118
  38. MAGNESIUM SULFATE [Concomitant]
     Route: 041
     Dates: start: 20120101
  39. NIASPAN [Concomitant]
     Dosage: 500 MILLIGRAM
     Route: 048
     Dates: start: 20050101, end: 20120110
  40. BENADRYL [Concomitant]
     Dosage: 50 MILLIGRAM
     Route: 041
     Dates: start: 20120111, end: 20120111
  41. LENALIDOMIDE [Suspect]
     Dosage: 25 MILLIGRAM
     Route: 048
     Dates: start: 20111222, end: 20120110
  42. DEXAMETHASONE [Suspect]
     Dosage: 12 MILLIGRAM
     Route: 065
     Dates: start: 20111222, end: 20120110
  43. PRILOSEC [Concomitant]
     Dosage: 20 MILLIGRAM
     Route: 048
     Dates: start: 20050101, end: 20120110
  44. SYNTHROID [Concomitant]
     Dosage: .075 MILLIGRAM
     Route: 048
     Dates: start: 20110624, end: 20110720
  45. DILAUDID [Concomitant]
     Indication: PAIN
     Dosage: 1 MILLIGRAM
     Route: 048
     Dates: start: 20110901, end: 20120118
  46. DILAUDID [Concomitant]
     Dosage: .5 MILLIGRAM
     Route: 058
     Dates: start: 20120119, end: 20120121
  47. CALCIUM [Concomitant]
     Route: 065
     Dates: start: 20120101
  48. SODIUM CHLORIDE [Concomitant]
     Indication: HYPOTENSION
     Dosage: 120 MILLILITER
     Route: 040
     Dates: start: 20120110, end: 20120111
  49. ZOVIRAX [Concomitant]
     Route: 065
     Dates: start: 20101228, end: 20110112
  50. FLEXERIL [Concomitant]
     Route: 065
  51. POTASSIUM CHLORIDE [Concomitant]
     Dosage: 20 MILLIEQUIVALENTS
     Route: 048
     Dates: start: 20120114, end: 20120116
  52. LENALIDOMIDE [Suspect]
     Indication: MULTIPLE MYELOMA
     Dosage: 25 MILLIGRAM
     Route: 048
     Dates: start: 20101104
  53. ASPIRIN [Concomitant]
     Indication: HYPERTENSION
     Dosage: 80 MILLIGRAM
     Route: 048
     Dates: start: 20050101, end: 20120118
  54. SYNTHROID [Concomitant]
     Dosage: .1 MILLIGRAM
     Route: 048
     Dates: start: 20110721, end: 20120118
  55. DILAUDID [Concomitant]
     Dosage: 10 MILLIGRAM
     Route: 040
     Dates: start: 20120121
  56. CALCIUM GLUCONATE [Concomitant]
     Dosage: 500 MILLIGRAM
     Route: 048
     Dates: start: 20120112, end: 20120113
  57. ACETAMINOPHEN [Concomitant]
     Dosage: 650 MILLIGRAM
     Route: 048
     Dates: start: 20120112, end: 20120118
  58. ANUSOL [Concomitant]
     Route: 065
     Dates: start: 20120115, end: 20120118
  59. SODIUM CHLORIDE [Concomitant]
     Dosage: 180 CC
     Route: 040
     Dates: start: 20120117, end: 20120118
  60. SCOPOLAMINE [Concomitant]
     Dosage: .6 MILLIGRAM
     Route: 065
     Dates: start: 20120119
  61. EURO-D [Concomitant]
     Dosage: 400 U
     Route: 048
     Dates: start: 20080101, end: 20120118
  62. LOVENOX [Concomitant]
     Dosage: 40
     Route: 058
     Dates: start: 20120114, end: 20120118
  63. SODIUM CHLORIDE [Concomitant]
     Indication: HYPOTENSION
     Dosage: 1 LITERS
     Route: 040
     Dates: start: 20120117, end: 20120117
  64. HEPARIN [Concomitant]
     Dosage: 5000
     Route: 058
     Dates: start: 20120113, end: 20120114
  65. SOLU-CORTEF [Concomitant]
     Dosage: 50 MILLIGRAM
     Route: 041
     Dates: start: 20120113, end: 20120118
  66. VITAMIN D [Concomitant]
     Indication: MULTIPLE FRACTURES
     Dosage: 20
     Route: 065
     Dates: start: 20101007, end: 20101013
  67. HYDROMORPHONE HCL [Concomitant]
     Indication: PAIN
     Dosage: 6 MILLIGRAM
     Route: 048
     Dates: start: 20110224, end: 20120121
  68. LASIX [Concomitant]
     Dosage: 20 MILLIGRAM
     Route: 048
     Dates: start: 20120114, end: 20120117
  69. SODIUM CHLORIDE [Concomitant]
     Dosage: 500 MILLILITER
     Route: 040
     Dates: start: 20120113, end: 20120117
  70. LACTULOSE [Concomitant]
     Indication: CONSTIPATION
     Route: 065
  71. SODIUM CHLORIDE [Concomitant]
     Dosage: 500 MILLILITER
     Route: 040
     Dates: start: 20120117, end: 20120117
  72. LYRICA [Concomitant]
     Dosage: 25 MILLIGRAM
     Route: 048
     Dates: end: 20111021
  73. PNEUMOVAX 23 [Concomitant]
     Indication: INFECTION PROPHYLAXIS
     Dosage: .5 MILLILITER
     Route: 065
     Dates: start: 20101104, end: 20101104

REACTIONS (25)
  - FATIGUE [None]
  - GENERAL PHYSICAL HEALTH DETERIORATION [None]
  - HYPERGLYCAEMIA [None]
  - HYPOCALCAEMIA [None]
  - INSOMNIA [None]
  - HYPERURICAEMIA [None]
  - HEPATIC STEATOSIS [None]
  - FEBRILE NEUTROPENIA [None]
  - BLOOD MAGNESIUM DECREASED [None]
  - OEDEMA [None]
  - VOMITING [None]
  - HYPOTENSION [None]
  - DECREASED APPETITE [None]
  - ECCHYMOSIS [None]
  - HAEMORRHOIDS [None]
  - BLOOD CREATININE INCREASED [None]
  - PRODUCTIVE COUGH [None]
  - BLOOD BICARBONATE DECREASED [None]
  - NEUTROPENIA [None]
  - INFECTION [None]
  - HYPOKALAEMIA [None]
  - DIARRHOEA [None]
  - HYPOPHOSPHATAEMIA [None]
  - HYPOTHYROIDISM [None]
  - DYSPNOEA [None]
